FAERS Safety Report 11821130 (Version 5)
Quarter: 2017Q3

REPORT INFORMATION
  Report Type: Spontaneous
  Country: US (occurrence: US)
  Receive Date: 20151210
  Receipt Date: 20170725
  Transmission Date: 20171127
  Serious: No
  Sender: FDA-Public Use
  Company Number: US-JNJFOC-20150805829

PATIENT
  Age: 78 Year
  Sex: Male

DRUGS (18)
  1. IMBRUVICA [Suspect]
     Active Substance: IBRUTINIB
     Indication: CHRONIC LYMPHOCYTIC LEUKAEMIA
     Route: 048
     Dates: start: 20170131, end: 2017
  2. IMBRUVICA [Suspect]
     Active Substance: IBRUTINIB
     Indication: CHRONIC LYMPHOCYTIC LEUKAEMIA
     Route: 048
     Dates: start: 20140515
  3. PRILOSEC [Concomitant]
     Active Substance: OMEPRAZOLE MAGNESIUM
  4. MUCINEX [Concomitant]
     Active Substance: GUAIFENESIN
  5. CENTRUM [Concomitant]
     Active Substance: VITAMINS
  6. BIFIDOBACTERIUM LACTIS [Concomitant]
     Active Substance: BIFIDOBACTERIUM ANIMALIS LACTIS
  7. IMBRUVICA [Suspect]
     Active Substance: IBRUTINIB
     Indication: CHRONIC LYMPHOCYTIC LEUKAEMIA
     Route: 048
     Dates: start: 2017
  8. VITAMIN C [Concomitant]
     Active Substance: ASCORBIC ACID
  9. FISH OIL [Concomitant]
     Active Substance: FISH OIL
  10. LIPITOR [Concomitant]
     Active Substance: ATORVASTATIN CALCIUM
  11. VALACYCLOVIR [Concomitant]
     Active Substance: VALACYCLOVIR HYDROCHLORIDE
  12. MULTIVITAMINS [Concomitant]
     Active Substance: VITAMINS
  13. CALCIUM CITRATE [Concomitant]
     Active Substance: CALCIUM CITRATE
  14. ELIQUIS [Concomitant]
     Active Substance: APIXABAN
  15. TOPROL XL [Concomitant]
     Active Substance: METOPROLOL SUCCINATE
  16. VITAMIN D [Concomitant]
     Active Substance: CHOLECALCIFEROL
  17. ASPIRIN. [Concomitant]
     Active Substance: ASPIRIN
  18. COENZYME Q10 [Concomitant]
     Active Substance: UBIDECARENONE

REACTIONS (8)
  - Contusion [Unknown]
  - Skin discolouration [Unknown]
  - Rash macular [Unknown]
  - Rash erythematous [Unknown]
  - Off label use [Unknown]
  - Acne [Unknown]
  - Incorrect dose administered [Unknown]
  - Rash [Unknown]

NARRATIVE: CASE EVENT DATE: 20140515
